FAERS Safety Report 5448909-4 (Version None)
Quarter: 2007Q3

REPORT INFORMATION
  Report Type: 
  Country: None (occurrence: None)
  Receive Date: 20070911
  Receipt Date: 20070706
  Transmission Date: 20080115
  Serious: Yes (Death, Hospitalization)
  Sender: FDA-Public Use
  Company Number: US-AVENTIS-200714883US

PATIENT
  Age: 61 Year
  Sex: Male

DRUGS (3)
  1. LOVENOX [Suspect]
     Indication: DEEP VEIN THROMBOSIS
     Route: 058
  2. LOVENOX [Suspect]
     Route: 058
  3. WARFARIN SODIUM [Concomitant]
     Dosage: DOSE: UNK

REACTIONS (8)
  - ABDOMINAL PAIN [None]
  - ABDOMINAL TENDERNESS [None]
  - DEATH [None]
  - EMOTIONAL DISTRESS [None]
  - HAEMOGLOBIN DECREASED [None]
  - MUSCLE HAEMORRHAGE [None]
  - PNEUMONIA [None]
  - PRODUCTIVE COUGH [None]
